FAERS Safety Report 6775760-5 (Version None)
Quarter: 2010Q2

REPORT INFORMATION
  Report Type: 
  Country: None (occurrence: None)
  Receive Date: 20100617
  Receipt Date: 20100604
  Transmission Date: 20101027
  Serious: Yes (Hospitalization)
  Sender: FDA-Public Use
  Company Number: KR-GENENTECH-302590

PATIENT
  Sex: Male
  Weight: 69 kg

DRUGS (4)
  1. BLINDED PLACEBO [Suspect]
     Indication: DIABETIC RETINAL OEDEMA
     Dosage: UNK
     Route: 031
     Dates: start: 20100331, end: 20100331
  2. BLINDED RANIBIZUMAB [Suspect]
     Indication: DIABETIC RETINAL OEDEMA
     Dosage: UNK
     Route: 031
     Dates: start: 20100331, end: 20100331
  3. BLINDED PLACEBO [Suspect]
     Dosage: UNK
     Route: 031
     Dates: start: 20100429, end: 20100429
  4. BLINDED RANIBIZUMAB [Suspect]
     Dosage: UNK
     Route: 031
     Dates: start: 20100429, end: 20100429

REACTIONS (2)
  - ACUTE MYOCARDIAL INFARCTION [None]
  - DISEASE PROGRESSION [None]
